FAERS Safety Report 13573793 (Version 1)
Quarter: 2017Q2

REPORT INFORMATION
  Report Type: Spontaneous
  Country: US (occurrence: US)
  Receive Date: 20170523
  Receipt Date: 20170523
  Transmission Date: 20170830
  Serious: No
  Sender: FDA-Public Use
  Company Number: US-DRREDDYS-USA/USA/17/0087218

PATIENT
  Age: 16 Year
  Sex: Male
  Weight: 104.3 kg

DRUGS (4)
  1. ZENATANE [Suspect]
     Active Substance: ISOTRETINOIN
     Route: 048
     Dates: start: 20161024
  2. AMOXICILLIN. [Suspect]
     Active Substance: AMOXICILLIN
     Indication: PRODUCT USED FOR UNKNOWN INDICATION
     Route: 065
  3. ZENATANE [Suspect]
     Active Substance: ISOTRETINOIN
     Indication: ACNE
     Route: 048
     Dates: start: 20160930
  4. ZENATANE [Suspect]
     Active Substance: ISOTRETINOIN
     Route: 048
     Dates: start: 201612, end: 201612

REACTIONS (5)
  - Feeling hot [Recovered/Resolved]
  - Lip dry [Unknown]
  - Drug hypersensitivity [Unknown]
  - Dry mouth [Unknown]
  - Burning sensation [Unknown]

NARRATIVE: CASE EVENT DATE: 20161003
